FAERS Safety Report 8291548-0 (Version None)
Quarter: 2012Q2

REPORT INFORMATION
  Report Type: 
  Country: None (occurrence: None)
  Receive Date: 20120417
  Receipt Date: 20120411
  Transmission Date: 20120825
  Serious: Yes (Other)
  Sender: FDA-Public Use
  Company Number: US-CUBIST-2012S1000351

PATIENT
  Sex: Female

DRUGS (3)
  1. CUBICIN [Suspect]
     Indication: SEPSIS
     Dosage: DOSE UNIT:U UNKNOWN
     Route: 065
  2. VANCOMYCIN [Concomitant]
     Indication: SEPSIS
     Dosage: DOSE UNIT:U UNKNOWN
     Route: 065
  3. CLINDAMYCIN [Concomitant]
     Indication: SEPSIS
     Dosage: DOSE UNIT:U UNKNOWN
     Route: 065

REACTIONS (1)
  - MYOCARDIAL INFARCTION [None]
